FAERS Safety Report 23959573 (Version 1)
Quarter: 2024Q2

REPORT INFORMATION
  Report Type: Spontaneous
  Country: US (occurrence: US)
  Receive Date: 20240611
  Receipt Date: 20240611
  Transmission Date: 20240716
  Serious: Yes (Other)
  Sender: FDA-Public Use
  Company Number: US-GLENMARK PHARMACEUTICALS-2024GMK091295

PATIENT

DRUGS (2)
  1. PRAVASTATIN SODIUM [Suspect]
     Active Substance: PRAVASTATIN SODIUM
     Indication: Myocardial infarction
     Dosage: 2 DOSAGE FORM, BID(TWO TABLETS OF 40 MG ORALLY ONCE DAILY)
     Route: 065
  2. COENZYME Q10 [Concomitant]
     Active Substance: DIETARY SUPPLEMENT\UBIDECARENONE
     Indication: Supplementation therapy
     Dosage: 1 DOSAGE FORM ONCE DAILY
     Route: 065

REACTIONS (3)
  - Renal impairment [Unknown]
  - Myalgia [Unknown]
  - Product use issue [Unknown]
